FAERS Safety Report 10223978 (Version 1)
Quarter: 2014Q2

REPORT INFORMATION
  Report Type: Spontaneous
  Country: JP (occurrence: JP)
  Receive Date: 20140609
  Receipt Date: 20140609
  Transmission Date: 20141212
  Serious: Yes (Other)
  Sender: FDA-Public Use
  Company Number: JP-PFIZER INC-2014153222

PATIENT
  Age: 61 Year
  Sex: Male

DRUGS (1)
  1. AMPICILLIN SODIUM/SULBACTAM SODIUM [Suspect]
     Dosage: UNK

REACTIONS (10)
  - Pulmonary haemorrhage [Recovered/Resolved]
  - Factor V inhibition [Recovered/Resolved]
  - Mouth haemorrhage [None]
  - Ecchymosis [None]
  - Petechiae [None]
  - Normochromic normocytic anaemia [None]
  - Prothrombin time prolonged [None]
  - Activated partial thromboplastin time prolonged [None]
  - Acute respiratory failure [None]
  - Off label use [None]
